FAERS Safety Report 10010682 (Version 2)
Quarter: 2014Q4

REPORT INFORMATION
  Report Type: Spontaneous
  Country: US (occurrence: US)
  Receive Date: 20140314
  Receipt Date: 20141222
  Transmission Date: 20150528
  Serious: Yes (Hospitalization, Other)
  Sender: FDA-Public Use
  Company Number: US-RANBAXY-2014US-78922

PATIENT
  Age: 53 Year
  Sex: Male

DRUGS (7)
  1. WARFARIN [Interacting]
     Active Substance: WARFARIN
     Dosage: 1 MG, QOD
  2. CHLORDIAZEPOXIDE [Concomitant]
     Active Substance: CHLORDIAZEPOXIDE
     Indication: PRODUCT USED FOR UNKNOWN INDICATION
     Dosage: 10 MG 1 TO 3 TIMES A DAY
     Route: 048
  3. AMOXICILLIN/CLAVULANIC ACID [Suspect]
     Active Substance: AMOXICILLIN\CLAVULANIC ACID
     Indication: TOOTH ABSCESS
     Dosage: 500/125 MG TWICE DAILY
     Route: 065
  4. TRAZODONE [Concomitant]
     Active Substance: TRAZODONE HYDROCHLORIDE
     Indication: PRODUCT USED FOR UNKNOWN INDICATION
     Dosage: 50 MG, QD (EVERY NIGHT)
     Route: 048
  5. WARFARIN [Interacting]
     Active Substance: WARFARIN
     Indication: ANTICOAGULANT THERAPY
     Dosage: 2 MG, QOD
     Route: 048
  6. ALBUTEROL. [Concomitant]
     Active Substance: ALBUTEROL
     Indication: PRODUCT USED FOR UNKNOWN INDICATION
     Dosage: UNK, PRN
     Route: 065
  7. VICODIN ES 7.5/750 [Concomitant]
     Indication: PAIN
     Dosage: 1 DF, PRN
     Route: 048

REACTIONS (7)
  - Prothrombin time prolonged [Unknown]
  - Haemorrhage [Recovered/Resolved]
  - Contusion [Unknown]
  - Haematuria [Unknown]
  - Drug interaction [Unknown]
  - Toxicity to various agents [Unknown]
  - International normalised ratio increased [Recovered/Resolved]
